FAERS Safety Report 12266731 (Version 2)
Quarter: 2016Q2

REPORT INFORMATION
  Report Type: Spontaneous
  Country: US (occurrence: US)
  Receive Date: 20160414
  Receipt Date: 20160520
  Transmission Date: 20160815
  Serious: No
  Sender: FDA-Public Use
  Company Number: US-009507513-1604USA000371

PATIENT
  Age: 35 Year
  Sex: Male

DRUGS (3)
  1. CUBICIN [Suspect]
     Active Substance: DAPTOMYCIN
     Dosage: 600 MG, DAILY
     Route: 042
     Dates: start: 20160422, end: 20160517
  2. CUBICIN [Suspect]
     Active Substance: DAPTOMYCIN
     Indication: CELLULITIS
     Dosage: 600 MG, DAILY
     Route: 042
     Dates: start: 20160104, end: 20160118
  3. CUBICIN [Suspect]
     Active Substance: DAPTOMYCIN
     Dosage: 600 MG, DAILY
     Route: 042
     Dates: start: 20160220, end: 20160321

REACTIONS (2)
  - Inappropriate schedule of drug administration [Unknown]
  - No adverse event [Unknown]

NARRATIVE: CASE EVENT DATE: 20160119
